FAERS Safety Report 19877111 (Version 1)
Quarter: 2021Q3

REPORT INFORMATION
  Report Type: Spontaneous
  Country: US (occurrence: US)
  Receive Date: 20210922
  Receipt Date: 20210922
  Transmission Date: 20211014
  Serious: Yes (Death, Hospitalization)
  Sender: FDA-Public Use
  Company Number: None

PATIENT
  Age: 88 Year
  Sex: Female

DRUGS (1)
  1. PROMACTA [Suspect]
     Active Substance: ELTROMBOPAG OLAMINE
     Indication: IMMUNE THROMBOCYTOPENIA
     Route: 048
     Dates: start: 20200417, end: 20210916

REACTIONS (5)
  - Hemiparesis [None]
  - Cerebral haemorrhage [None]
  - Facial paralysis [None]
  - Aphasia [None]
  - COVID-19 [None]

NARRATIVE: CASE EVENT DATE: 20210914
